FAERS Safety Report 4518743-8 (Version None)
Quarter: 2004Q4

REPORT INFORMATION
  Report Type: 
  Country: None (occurrence: None)
  Receive Date: 20041201
  Receipt Date: 20041119
  Transmission Date: 20050328
  Serious: Yes (Hospitalization)
  Sender: FDA-Public Use
  Company Number: S04-USA-07514-01

PATIENT
  Age: 40 Year
  Sex: Female
  Weight: 65.7716 kg

DRUGS (16)
  1. LEXAPRO [Suspect]
     Indication: DEPRESSION
     Dosage: 300 MG ONCE PO
     Route: 048
     Dates: start: 20041121, end: 20041021
  2. LEXAPRO [Suspect]
     Indication: DEPRESSION
     Dosage: 80 MG QD PO
     Route: 048
     Dates: start: 20040924, end: 20041001
  3. PLAVIX [Suspect]
     Indication: ISCHAEMIC STROKE
     Dosage: 20 TABLET ONCE
     Dates: start: 20041021, end: 20041021
  4. PLAVIX [Suspect]
     Indication: ISCHAEMIC STROKE
     Dosage: 75 MG QD
     Dates: start: 20020101
  5. AMBIEN [Suspect]
     Indication: SLEEP DISORDER
     Dosage: 130 MG ONCE
     Dates: start: 20041021, end: 20041021
  6. AMBIEN [Suspect]
     Indication: SLEEP DISORDER
  7. DEPAKOTE [Suspect]
     Indication: CONVERSION DISORDER
     Dosage: 4 G ONCE
     Dates: start: 20041021, end: 20041021
  8. DEPAKOTE [Suspect]
     Indication: CONVERSION DISORDER
     Dosage: 125 MG BID
     Dates: start: 20041030
  9. DEPAKOTE [Suspect]
     Indication: CONVERSION DISORDER
     Dates: end: 20041001
  10. XANAX [Suspect]
     Dates: start: 20041021, end: 20041021
  11. XANAX [Suspect]
     Dosage: 0.5 MG TID
     Dates: end: 20041001
  12. KLONOPIN [Suspect]
     Indication: DEPRESSION
     Dates: start: 20041021, end: 20041021
  13. KLONOPIN [Suspect]
     Indication: DEPRESSION
     Dosage: 5 MG TID
     Dates: start: 20040924, end: 20041001
  14. PHENERGAN [Suspect]
     Dates: start: 20041021, end: 20041021
  15. ACETYLSALICYLIC ACID [Concomitant]
  16. MIGRANAL [Concomitant]

REACTIONS (14)
  - ALANINE AMINOTRANSFERASE INCREASED [None]
  - ASPARTATE AMINOTRANSFERASE INCREASED [None]
  - BLOOD PH INCREASED [None]
  - CEREBROVASCULAR ACCIDENT [None]
  - COMA [None]
  - DEPRESSION [None]
  - ENCEPHALOPATHY [None]
  - HYPERAMMONAEMIA [None]
  - HYPOTENSION [None]
  - LETHARGY [None]
  - MULTIPLE DRUG OVERDOSE INTENTIONAL [None]
  - PNEUMONIA HAEMOPHILUS [None]
  - SUICIDAL IDEATION [None]
  - SUICIDE ATTEMPT [None]
